FAERS Safety Report 7438538-5 (Version None)
Quarter: 2011Q2

REPORT INFORMATION
  Report Type: 
  Country: None (occurrence: None)
  Receive Date: 20110426
  Receipt Date: 20110413
  Transmission Date: 20111010
  Serious: Yes (Other)
  Sender: FDA-Public Use
  Company Number: US-BAYER-2011-034663

PATIENT
  Sex: Female
  Weight: 68 kg

DRUGS (7)
  1. ALKA-SELTZER GOLD [Suspect]
     Dosage: 2 DF, UNK
     Route: 048
  2. LIDODERM [Concomitant]
  3. DIURETICS [Concomitant]
  4. HYDROCODONE [HYDROCODONE] [Concomitant]
  5. ALLERGY SHOTS [Concomitant]
  6. ALEVE [Concomitant]
  7. ANALGESICS [Concomitant]

REACTIONS (1)
  - OEDEMA PERIPHERAL [None]
